FAERS Safety Report 12821921 (Version 2)
Quarter: 2017Q1

REPORT INFORMATION
  Report Type: Spontaneous
  Country: PE (occurrence: PE)
  Receive Date: 20161007
  Receipt Date: 20170131
  Transmission Date: 20170428
  Serious: Yes (Other)
  Sender: FDA-Public Use
  Company Number: PE-PFIZER INC-2016458294

PATIENT
  Age: 65 Year
  Sex: Female

DRUGS (2)
  1. XALACOM [Suspect]
     Active Substance: LATANOPROST\TIMOLOL MALEATE
     Indication: GLAUCOMA
     Dosage: 1 DROP EACH EYE, 1XDAY
     Route: 047
     Dates: start: 20160915
  2. XALATAN [Suspect]
     Active Substance: LATANOPROST
     Indication: GLAUCOMA
     Dosage: UNK

REACTIONS (4)
  - Visual acuity reduced [Unknown]
  - Retinopathy [Unknown]
  - Eye irritation [Recovered/Resolved]
  - Cataract [Unknown]
